FAERS Safety Report 6166948-5 (Version None)
Quarter: 2009Q2

REPORT INFORMATION
  Report Type: 
  Country: None (occurrence: None)
  Receive Date: 20090423
  Receipt Date: 20090423
  Transmission Date: 20091009
  Serious: Yes (Hospitalization)
  Sender: FDA-Public Use
  Company Number: None

PATIENT
  Age: 19 Year
  Weight: 43 kg

DRUGS (2)
  1. LORAZEPAM [Suspect]
     Indication: MECHANICAL VENTILATION
     Dosage: 5 MG/HR CONTINUOUS IV DRIP
     Route: 041
     Dates: start: 20090101, end: 20090103
  2. LORAZEPAM [Suspect]
     Indication: SEDATION
     Dosage: 5 MG/HR CONTINUOUS IV DRIP
     Route: 041
     Dates: start: 20090101, end: 20090103

REACTIONS (5)
  - ACIDOSIS [None]
  - DRUG TOXICITY [None]
  - GENERAL PHYSICAL HEALTH DETERIORATION [None]
  - RENAL FAILURE ACUTE [None]
  - SEPSIS [None]
